FAERS Safety Report 8281073-5 (Version None)
Quarter: 2012Q2

REPORT INFORMATION
  Report Type: 
  Country: None (occurrence: None)
  Receive Date: 20120412
  Receipt Date: 20120330
  Transmission Date: 20120825
  Serious: Yes (Death)
  Sender: FDA-Public Use
  Company Number: JP-MYLANLABS-2012S1007441

PATIENT
  Age: 77 Year
  Sex: Female
  Weight: 43 kg

DRUGS (4)
  1. VANCOMYCIN [Suspect]
     Indication: SEPSIS
     Route: 041
     Dates: start: 20120120, end: 20120120
  2. UNASYN [Suspect]
     Indication: SEPSIS
     Route: 041
     Dates: start: 20120119, end: 20120219
  3. VANCOMYCIN [Suspect]
     Route: 041
     Dates: start: 20120121, end: 20120125
  4. ZOSYN [Suspect]
     Indication: SEPSIS
     Route: 041
     Dates: start: 20120120

REACTIONS (4)
  - HEPATIC FUNCTION ABNORMAL [None]
  - RENAL IMPAIRMENT [None]
  - PLATELET COUNT DECREASED [None]
  - CONDITION AGGRAVATED [None]
